FAERS Safety Report 5916080-8 (Version None)
Quarter: 2008Q4

REPORT INFORMATION
  Report Type: 
  Country: None (occurrence: None)
  Receive Date: 20081013
  Receipt Date: 20080929
  Transmission Date: 20090506
  Serious: Yes (Hospitalization, Other)
  Sender: FDA-Public Use
  Company Number: US-ABBOTT-08P-163-0478713-00

PATIENT
  Sex: Female
  Weight: 62.652 kg

DRUGS (15)
  1. HUMIRA [Suspect]
     Indication: JUVENILE ARTHRITIS
     Dates: start: 20080914
  2. HUMIRA [Suspect]
     Dates: start: 20040101, end: 20080101
  3. VANCOMYCIN HYDROCHLORIDE [Suspect]
     Indication: SEPSIS
     Route: 042
     Dates: start: 20080101, end: 20080301
  4. METOPROLOL TARTRATE [Concomitant]
     Indication: HYPERTENSION
     Route: 048
  5. AMLODIPINE [Concomitant]
     Indication: HYPERTENSION
     Route: 048
  6. LISINOPRIL [Concomitant]
     Indication: HYPERTENSION
  7. OMEPRAZOLE [Concomitant]
     Indication: GASTROOESOPHAGEAL REFLUX DISEASE
  8. LORAZEPAM [Concomitant]
     Indication: SLEEP DISORDER THERAPY
  9. METHOTREXATE [Concomitant]
     Indication: DRUG USE FOR UNKNOWN INDICATION
  10. CALCIUM FOLINATE [Concomitant]
     Indication: VITAMIN SUPPLEMENTATION
  11. KAPSOVIT [Concomitant]
     Indication: DRUG USE FOR UNKNOWN INDICATION
  12. DIPHENHYDRAMINE HYDROCHLORIDE [Concomitant]
     Indication: PROPHYLAXIS
     Route: 042
     Dates: start: 20080101, end: 20080101
  13. DIPHENHYDRAMINE HYDROCHLORIDE [Concomitant]
     Dates: start: 20080101, end: 20080301
  14. CHLORAMPHENICOL [Concomitant]
     Indication: DEVICE RELATED INFECTION
     Dates: start: 20080501
  15. LEVOFLOXACIN [Concomitant]
     Indication: DEVICE RELATED INFECTION
     Dates: start: 20080601

REACTIONS (8)
  - ARTHRALGIA [None]
  - ARTHRITIS BACTERIAL [None]
  - BONE EROSION [None]
  - FINGER DEFORMITY [None]
  - LOCALISED INFECTION [None]
  - PAIN IN EXTREMITY [None]
  - RED MAN SYNDROME [None]
  - TENDON RUPTURE [None]
